FAERS Safety Report 8722244 (Version 5)
Quarter: 2020Q3

REPORT INFORMATION
  Report Type: Report from Study
  Country: DK (occurrence: DK)
  Receive Date: 20120814
  Receipt Date: 20121015
  Transmission Date: 20201104
  Serious: Yes (Hospitalization)
  Sender: FDA-Public Use
  Company Number: DK-JNJFOC-20120804708

PATIENT
  Age: 46 Year
  Sex: Male
  Weight: 95.6 kg

DRUGS (8)
  1. GOLIMUMAB [Suspect]
     Active Substance: GOLIMUMAB
     Indication: COLITIS ULCERATIVE
     Route: 058
     Dates: start: 20100507
  2. GOLIMUMAB [Suspect]
     Active Substance: GOLIMUMAB
     Indication: COLITIS ULCERATIVE
     Route: 058
     Dates: start: 20120917
  3. RAMIPRIL. [Concomitant]
     Active Substance: RAMIPRIL
     Route: 048
     Dates: start: 20070601, end: 20100815
  4. GOLIMUMAB [Suspect]
     Active Substance: GOLIMUMAB
     Indication: COLITIS ULCERATIVE
     Route: 058
     Dates: start: 20120803, end: 20120803
  5. RAMIPRIL. [Concomitant]
     Active Substance: RAMIPRIL
     Route: 048
     Dates: start: 20111013
  6. IBUMETIN [Concomitant]
     Active Substance: IBUPROFEN
     Route: 048
     Dates: start: 20120731
  7. PANODIL [Concomitant]
     Active Substance: ACETAMINOPHEN
     Route: 048
     Dates: start: 20120731
  8. TRADOLAN [Concomitant]
     Active Substance: TRAMADOL
     Route: 048
     Dates: start: 20120703

REACTIONS (1)
  - Meningitis viral [Recovered/Resolved with Sequelae]

NARRATIVE: CASE EVENT DATE: 20120803
